FAERS Safety Report 8902112 (Version 2)
Quarter: 2013Q1

REPORT INFORMATION
  Report Type: Report from Study
  Country: US (occurrence: US)
  Receive Date: 20121112
  Receipt Date: 20130118
  Transmission Date: 20140127
  Serious: Yes (Hospitalization)
  Sender: FDA-Public Use
  Company Number: US-GENZYME-MOZO-1000769

PATIENT
  Sex: Female
  Weight: 68.2 kg

DRUGS (14)
  1. MOZOBIL [Suspect]
     Indication: ACUTE MYELOID LEUKAEMIA
     Dosage: 14736 MCG, EVERY OTHER DAY (CYCLE 1)
     Route: 058
     Dates: start: 20120620, end: 20120702
  2. MOZOBIL [Suspect]
     Dosage: 13416 MCG, QOD (CYCLE 2)U
     Route: 058
     Dates: start: 20120718, end: 20120730
  3. MOZOBIL [Suspect]
     Dosage: 13150 MCG, QOD (CYCLE 3)
     Route: 058
     Dates: start: 20120816, end: 20120828
  4. MOZOBIL [Suspect]
     Dosage: 13150 MCG, QOD (CYCLE 4)
     Route: 058
     Dates: start: 20120913, end: 20120925
  5. NEUPOGEN [Suspect]
     Indication: ACUTE MYELOID LEUKAEMIA
     Dosage: 6000 MCG, QOD (CYCLE 1)
     Route: 058
     Dates: start: 20120620, end: 20120702
  6. NEUPOGEN [Suspect]
     Dosage: 6000 MCG, QOD (CYCLE 2)
     Route: 058
     Dates: start: 20120718, end: 20120730
  7. NEUPOGEN [Suspect]
     Dosage: 600 MCG, QOD (CYCLE 3)
     Route: 058
     Dates: start: 20120816, end: 20120828
  8. NEUPOGEN [Suspect]
     Dosage: 600 MCG, QOD (CYCLE 4)
     Route: 058
     Dates: start: 20120913, end: 20120925
  9. SORAFENIB [Suspect]
     Indication: ACUTE MYELOID LEUKAEMIA
     Dosage: 800 MG, QD (CYCLE 1)
     Route: 065
     Dates: start: 20120620, end: 20120717
  10. SORAFENIB [Suspect]
     Dosage: 800 MG, QD (CYCLE 2)
     Route: 065
     Dates: start: 20120718, end: 20120722
  11. SORAFENIB [Suspect]
     Dosage: 600 MG, BID (CYCLE 2)
     Route: 065
     Dates: start: 20120726, end: 20120803
  12. SORAFENIB [Suspect]
     Dosage: 600 MG, BID (CYCLE 3) ON DAYS 1-28
     Route: 065
     Dates: start: 20120816, end: 20120912
  13. SORAFENIB [Suspect]
     Dosage: 400 MG, BID (CYCLE 3) ON DAYS 1-9
     Route: 065
     Dates: start: 20120913, end: 20120921
  14. SORAFENIB [Suspect]
     Dosage: 600 MG, BID STARTING WITH PM DOSE AND CONTINUED TO DAY 28
     Route: 065
     Dates: start: 20120921

REACTIONS (1)
  - Cellulitis [Recovered/Resolved]
